FAERS Safety Report 25103493 (Version 1)
Quarter: 2025Q1

REPORT INFORMATION
  Report Type: Spontaneous
  Country: US (occurrence: US)
  Receive Date: 20250321
  Receipt Date: 20250321
  Transmission Date: 20250408
  Serious: Yes (Death, Hospitalization, Other)
  Sender: GRAVITI PHARMACEUTICALS PRIVATE LIMITED
  Company Number: US-GRAVITIPHARMA-GRA-2503-US-LIT-0140

PATIENT
  Age: 27 Year
  Sex: Male

DRUGS (1)
  1. BUPROPION HYDROCHLORIDE [Suspect]
     Active Substance: BUPROPION HYDROCHLORIDE
     Indication: Product used for unknown indication
     Route: 065

REACTIONS (8)
  - Toxicity to various agents [Fatal]
  - Status epilepticus [Unknown]
  - Ventricular fibrillation [Unknown]
  - Cardiac arrest [Unknown]
  - Acute kidney injury [Unknown]
  - Hypotension [Unknown]
  - Overdose [Unknown]
  - Intentional product misuse [Unknown]
